FAERS Safety Report 19296584 (Version 1)
Quarter: 2021Q2

REPORT INFORMATION
  Report Type: Spontaneous
  Country: GB (occurrence: GB)
  Receive Date: 20210524
  Receipt Date: 20210524
  Transmission Date: 20210717
  Serious: Yes (Life-Threatening, Hospitalization, Disabling, Other)
  Sender: FDA-Public Use
  Company Number: GB-TEVA-2021-GB-1912830

PATIENT
  Age: 31 Year
  Sex: Male
  Weight: 160 kg

DRUGS (3)
  1. PROCHLORPEMAZINE [Concomitant]
     Dates: start: 20210201, end: 20210301
  2. NEFOPAM [Concomitant]
     Active Substance: NEFOPAM
     Dates: start: 20210506
  3. COCODAMOL [Suspect]
     Active Substance: ACETAMINOPHEN\CODEINE PHOSPHATE
     Route: 065

REACTIONS (2)
  - Subarachnoid haemorrhage [Not Recovered/Not Resolved]
  - Thrombocytopenia [Unknown]

NARRATIVE: CASE EVENT DATE: 20210511
